FAERS Safety Report 7907840-2 (Version None)
Quarter: 2011Q4

REPORT INFORMATION
  Report Type: 
  Country: None (occurrence: None)
  Receive Date: 20111110
  Receipt Date: 20111110
  Transmission Date: 20120403
  Serious: Yes (Other)
  Sender: FDA-Public Use
  Company Number: FI-PFIZER INC-2011275205

PATIENT
  Age: 58 Year
  Sex: Female

DRUGS (6)
  1. VARENICLINE TARTRATE [Suspect]
     Dosage: 1 MG, 2X/DAY
  2. ALPRAZOLAM [Concomitant]
     Dosage: UNK
  3. VARENICLINE TARTRATE [Suspect]
     Dosage: UNK
  4. SINGULAIR [Concomitant]
     Indication: ASTHMA
     Dosage: UNK
  5. BUVENTOL [Concomitant]
     Indication: ASTHMA
     Dosage: UNK
  6. CETIRIZINE [Concomitant]
     Indication: ASTHMA
     Dosage: UNK

REACTIONS (2)
  - PALPITATIONS [None]
  - BLOOD PRESSURE INCREASED [None]
